FAERS Safety Report 10190066 (Version 2)
Quarter: 2014Q2

REPORT INFORMATION
  Report Type: Spontaneous
  Country: TR (occurrence: TR)
  Receive Date: 20140522
  Receipt Date: 20140522
  Transmission Date: 20141212
  Serious: Yes (Other)
  Sender: FDA-Public Use
  Company Number: PHHY2014TR026077

PATIENT
  Age: 29 Year
  Sex: Female

DRUGS (1)
  1. SEBIVO [Suspect]
     Indication: CHRONIC HEPATITIS B
     Dosage: 1 DF, QD (ONCE IN A DAY)
     Route: 048
     Dates: start: 201303, end: 201311

REACTIONS (2)
  - Hypertriglyceridaemia [Recovered/Resolved]
  - Maternal exposure during pregnancy [Recovered/Resolved]
